FAERS Safety Report 21847415 (Version 1)
Quarter: 2023Q1

REPORT INFORMATION
  Report Type: Report from Study
  Country: US (occurrence: US)
  Receive Date: 20230111
  Receipt Date: 20230111
  Transmission Date: 20230417
  Serious: No
  Sender: FDA-Public Use
  Company Number: US-002147023-NVSC2023US005798

PATIENT
  Sex: Male

DRUGS (1)
  1. TREPROSTINIL [Suspect]
     Active Substance: TREPROSTINIL
     Indication: Pulmonary arterial hypertension
     Dosage: 149 NG/KG/MIN, CONT
     Route: 058
     Dates: start: 20210604

REACTIONS (1)
  - COVID-19 [Unknown]
